FAERS Safety Report 17818923 (Version 1)
Quarter: 2020Q2

REPORT INFORMATION
  Report Type: Spontaneous
  Country: GB (occurrence: GB)
  Receive Date: 20200522
  Receipt Date: 20200522
  Transmission Date: 20200714
  Serious: Yes (Life-Threatening, Hospitalization, Other)
  Sender: FDA-Public Use
  Company Number: GB-BAXTER-2020BAX010303

PATIENT
  Age: 6 Decade
  Sex: Male

DRUGS (10)
  1. AMBISOME [Concomitant]
     Active Substance: AMPHOTERICIN B
     Indication: PULMONARY CAVITATION
  2. RANITIDINE. [Concomitant]
     Active Substance: RANITIDINE
     Indication: PRODUCT USED FOR UNKNOWN INDICATION
     Dosage: THREE TIMES A WEEK
     Route: 065
  3. ALLOPURINOL. [Concomitant]
     Active Substance: ALLOPURINOL
     Indication: PRODUCT USED FOR UNKNOWN INDICATION
     Dosage: THREE TIMES A WEEK
     Route: 065
  4. CYCLOPHOSPHAMIDE INJECTION 1G [Suspect]
     Active Substance: CYCLOPHOSPHAMIDE
     Indication: PLASMA CELL MYELOMA
     Route: 065
  5. DEXAMETHASONE. [Suspect]
     Active Substance: DEXAMETHASONE
     Indication: PLASMA CELL MYELOMA
     Route: 065
  6. ACICLOVIR [Concomitant]
     Active Substance: ACYCLOVIR
     Indication: PRODUCT USED FOR UNKNOWN INDICATION
     Dosage: THREE TIMES A WEEK
     Route: 065
  7. SULFAMETHOXAZOLE/TRIMETHOPRIM [Concomitant]
     Active Substance: SULFAMETHOXAZOLE\TRIMETHOPRIM
     Indication: PRODUCT USED FOR UNKNOWN INDICATION
     Dosage: THREE TIMES A WEEK
     Route: 065
  8. ZOLEDRONIC ACID 4MG/5ML CONCENTRATE FOR SOLUTION FOR INFUSION [Suspect]
     Active Substance: ZOLEDRONIC ACID
     Indication: PLASMA CELL MYELOMA
     Dosage: ONCE A MONTH FOR 5 MONTHS
     Route: 065
  9. AMBISOME [Concomitant]
     Active Substance: AMPHOTERICIN B
     Indication: BRONCHOPULMONARY ASPERGILLOSIS
     Dosage: THREE TIMES A WEEK
     Route: 065
  10. BORTEZOMIB. [Suspect]
     Active Substance: BORTEZOMIB
     Indication: PLASMA CELL MYELOMA
     Route: 042

REACTIONS (8)
  - Periodontal disease [Recovering/Resolving]
  - Oroantral fistula [Recovered/Resolved]
  - Bacterial infection [Recovering/Resolving]
  - Tooth deposit [Recovering/Resolving]
  - Osteonecrosis of jaw [Recovering/Resolving]
  - Tooth abscess [Recovering/Resolving]
  - Periodontitis [Recovering/Resolving]
  - Sinusitis [Recovering/Resolving]
